FAERS Safety Report 15027272 (Version 1)
Quarter: 2018Q2

REPORT INFORMATION
  Report Type: Spontaneous
  Country: DE (occurrence: DE)
  Receive Date: 20180619
  Receipt Date: 20180619
  Transmission Date: 20180711
  Serious: Yes (Hospitalization)
  Sender: FDA-Public Use
  Company Number: DE-TEVA-2018-DE-908528

PATIENT
  Age: 86 Year
  Sex: Female
  Weight: 68 kg

DRUGS (7)
  1. XARELTO [Concomitant]
     Active Substance: RIVAROXABAN
     Dosage: 1-0-0
     Route: 048
  2. VIGANTOLETTEN 1000I.E. [Concomitant]
     Dosage: 1000 IE, 1-0-0
     Route: 048
  3. ZEBETA [Suspect]
     Active Substance: BISOPROLOL FUMARATE
     Dosage: 1-0-0
     Route: 048
  4. SIMVASTATIN. [Concomitant]
     Active Substance: SIMVASTATIN
     Dosage: 1-0-0,
     Route: 048
  5. ALLOPURINOL. [Concomitant]
     Active Substance: ALLOPURINOL
     Dosage: 1-0-0
     Route: 048
  6. LERCANIDIPIN [Concomitant]
     Active Substance: LERCANIDIPINE
     Dosage: 1-0-0
     Route: 048
  7. RAMIPRIL. [Concomitant]
     Active Substance: RAMIPRIL
     Dosage: 1-1-0
     Route: 048

REACTIONS (2)
  - Hypertensive emergency [Unknown]
  - Bradycardia [Unknown]
